FAERS Safety Report 13992452 (Version 1)
Quarter: 2017Q3

REPORT INFORMATION
  Report Type: Spontaneous
  Country: US (occurrence: US)
  Receive Date: 20170920
  Receipt Date: 20170920
  Transmission Date: 20171128
  Serious: No
  Sender: FDA-Public Use
  Company Number: US-RECKITT BENCKISER HEALTHCARE INT LIMITED-RB-90852-2016

PATIENT
  Age: 91 Year
  Sex: Male

DRUGS (2)
  1. MUCINEX [Suspect]
     Active Substance: GUAIFENESIN
     Indication: PRODUCT USED FOR UNKNOWN INDICATION
     Dosage: 600 MG, BID
     Route: 048
     Dates: start: 20160822, end: 201608
  2. MUCINEX [Suspect]
     Active Substance: GUAIFENESIN
     Dosage: 600 MG, QD
     Route: 048
     Dates: start: 201608

REACTIONS (6)
  - Product use complaint [Unknown]
  - Drug ineffective [Not Recovered/Not Resolved]
  - Product use issue [Recovered/Resolved]
  - Product size issue [Unknown]
  - Nausea [Recovered/Resolved]
  - Abdominal discomfort [Recovered/Resolved]

NARRATIVE: CASE EVENT DATE: 201608
